FAERS Safety Report 7687480-3 (Version None)
Quarter: 2011Q3

REPORT INFORMATION
  Report Type: 
  Country: None (occurrence: None)
  Receive Date: 20110817
  Receipt Date: 20110811
  Transmission Date: 20111222
  Serious: Yes (Life-Threatening)
  Sender: FDA-Public Use
  Company Number: FR-BRISTOL-MYERS SQUIBB COMPANY-15970957

PATIENT
  Age: 51 Year
  Sex: Male

DRUGS (3)
  1. CISPLATIN [Suspect]
     Indication: OESOPHAGEAL CARCINOMA
     Dates: start: 20081013, end: 20081111
  2. FLUOROURACIL [Suspect]
     Indication: OESOPHAGEAL CARCINOMA
     Dates: start: 20081013, end: 20081111
  3. CETUXIMAB [Suspect]
     Indication: OESOPHAGEAL CARCINOMA
     Dates: start: 20081008, end: 20081111

REACTIONS (3)
  - TRANSPLANT FAILURE [None]
  - MEDIASTINITIS [None]
  - SEPTIC SHOCK [None]
